FAERS Safety Report 10080643 (Version 1)
Quarter: 2014Q2

REPORT INFORMATION
  Report Type: Spontaneous
  Country: US (occurrence: US)
  Receive Date: 20140416
  Receipt Date: 20140416
  Transmission Date: 20141212
  Serious: Yes (Other)
  Sender: FDA-Public Use
  Company Number: US-JNJFOC-20140402852

PATIENT
  Age: 62 Year
  Sex: Female
  Weight: 68.04 kg

DRUGS (10)
  1. TERAZOL 7 [Suspect]
     Indication: FUNGAL INFECTION
     Dosage: FOR 7 DAYS AT NIGHT
     Route: 067
     Dates: start: 201403
  2. AMOXICILLIN [Suspect]
     Indication: EAR INFECTION
     Route: 065
  3. AMOXICILLIN [Suspect]
     Indication: EAR INFECTION
     Route: 065
     Dates: start: 201403
  4. AMOXICILLIN [Suspect]
     Indication: PRODUCT USED FOR UNKNOWN INDICATION
     Route: 065
     Dates: start: 201403
  5. AMOXICILLIN [Suspect]
     Indication: PRODUCT USED FOR UNKNOWN INDICATION
     Route: 065
  6. EXALGO [Concomitant]
     Indication: PAIN
     Route: 048
  7. PERCOCET [Concomitant]
     Indication: BREAKTHROUGH PAIN
     Dosage: 4-6 TIMES A DAY
     Route: 048
  8. SYNTHROID [Concomitant]
     Indication: THYROID DISORDER
     Dosage: 4-6 TIMES A DAY
     Route: 048
  9. ABILIFY [Concomitant]
     Indication: ANTIDEPRESSANT THERAPY
     Dosage: 4-6 TIMES A DAY
     Route: 048
  10. VIIBRYD [Concomitant]
     Indication: ANTIDEPRESSANT THERAPY
     Dosage: 4-6 TIMES A DAY
     Route: 048

REACTIONS (8)
  - Ear infection [Unknown]
  - Drug ineffective [Unknown]
  - Pain [Unknown]
  - Product container issue [Unknown]
  - Vulvovaginal pruritus [Not Recovered/Not Resolved]
  - Headache [Unknown]
  - Drug dose omission [Unknown]
  - Adverse event [Unknown]
